FAERS Safety Report 6756127-2 (Version None)
Quarter: 2010Q2

REPORT INFORMATION
  Report Type: 
  Country: None (occurrence: None)
  Receive Date: 20100603
  Receipt Date: 20100603
  Transmission Date: 20101027
  Serious: No
  Sender: FDA-Public Use
  Company Number: None

PATIENT
  Age: 62 Year
  Sex: Male
  Weight: 74 kg

DRUGS (1)
  1. METHOTREXATE [Suspect]
     Dosage: 15,280 MG ONCE IV
     Route: 042
     Dates: start: 20090901, end: 20100225

REACTIONS (8)
  - DECREASED APPETITE [None]
  - DIARRHOEA [None]
  - HEPATIC ENZYME INCREASED [None]
  - HYPOKALAEMIA [None]
  - HYPONATRAEMIA [None]
  - MOUTH ULCERATION [None]
  - NAUSEA [None]
  - VOMITING [None]
